FAERS Safety Report 7482765-8 (Version None)
Quarter: 2011Q2

REPORT INFORMATION
  Report Type: 
  Country: None (occurrence: None)
  Receive Date: 20110516
  Receipt Date: 20101226
  Transmission Date: 20111010
  Serious: No
  Sender: FDA-Public Use
  Company Number: US-BAYER-2011-026185

PATIENT
  Sex: Male
  Weight: 60.317 kg

DRUGS (8)
  1. SAMS CLUB FIBER SUPPLEMENT [Concomitant]
  2. STOOL SOFTENER [Concomitant]
  3. OMEGA-3 FATTY ACIDS [Concomitant]
  4. MULTI-VITAMIN [Concomitant]
  5. ALEVE (CAPLET) [Suspect]
     Indication: ARTHRALGIA
     Dosage: COUNT SIZE 100S + 50% BONUS
     Route: 048
     Dates: start: 20090101
  6. ATENOLOL [Concomitant]
  7. LISINOPRIL [Concomitant]
  8. GLUCOSAMINE SULFATE W/CHONDROITIN [Concomitant]

REACTIONS (1)
  - NO ADVERSE EVENT [None]
